FAERS Safety Report 9286906 (Version 1)
Quarter: 2013Q2

REPORT INFORMATION
  Report Type: Spontaneous
  Country: US (occurrence: US)
  Receive Date: 20130513
  Receipt Date: 20130513
  Transmission Date: 20140414
  Serious: No
  Sender: FDA-Public Use
  Company Number: US-B.I. PHARMACEUTICALS,INC./RIDGEFIELD-2013-BI-12247BP

PATIENT
  Age: 83 Year
  Sex: Female
  Weight: 59 kg

DRUGS (13)
  1. SPIRIVA [Suspect]
     Indication: EMPHYSEMA
     Dosage: 18 MCG
     Route: 055
     Dates: start: 2010
  2. SYNTHROID [Concomitant]
     Indication: HYPOTHYROIDISM
     Dosage: 112 MCG
     Route: 048
  3. NORVASC [Concomitant]
     Dosage: 5 MG
     Route: 048
  4. TOPROL XL [Concomitant]
     Dosage: 100 MG
     Route: 048
  5. OSCAL [Concomitant]
     Route: 048
  6. POTASSIUM [Concomitant]
     Dosage: 10 MEQ
     Route: 048
  7. LASIX [Concomitant]
     Indication: OEDEMA PERIPHERAL
     Dosage: 20 MG
     Route: 048
  8. PREDNISONE [Concomitant]
     Dosage: 1 MG
     Route: 048
  9. ZANTAC [Concomitant]
     Indication: GASTROOESOPHAGEAL REFLUX DISEASE
     Dosage: 150 MG
     Route: 048
  10. PROTONIX [Concomitant]
     Indication: GASTROOESOPHAGEAL REFLUX DISEASE
     Dosage: 40 MG
     Route: 048
  11. FLONASE [Concomitant]
     Dosage: 50 MCG
     Route: 045
  12. SINGULAIR [Concomitant]
     Dosage: 10 MG
     Route: 048
  13. REMERON [Concomitant]
     Indication: SLEEP DISORDER
     Dosage: 45 MG
     Route: 048

REACTIONS (3)
  - Fatigue [Not Recovered/Not Resolved]
  - Product quality issue [Recovered/Resolved]
  - Product quality issue [Recovered/Resolved]
